FAERS Safety Report 22244358 (Version 2)
Quarter: 2023Q2

REPORT INFORMATION
  Report Type: Spontaneous
  Country: CA (occurrence: CA)
  Receive Date: 20230424
  Receipt Date: 20230512
  Transmission Date: 20230721
  Serious: Yes (Other)
  Sender: FDA-Public Use
  Company Number: CA-AUROBINDO-AUR-APL-2023-031013

PATIENT
  Age: 40 Year
  Sex: Female

DRUGS (2)
  1. ESCITALOPRAM [Suspect]
     Active Substance: ESCITALOPRAM OXALATE
     Indication: Perinatal depression
     Dosage: 10 MILLIGRAM, ONCE A DAY
     Route: 048
     Dates: start: 202104
  2. ESCITALOPRAM [Suspect]
     Active Substance: ESCITALOPRAM OXALATE
     Dosage: 10 MILLIGRAM, ONCE A DAY
     Route: 048
     Dates: start: 20230305, end: 20230411

REACTIONS (8)
  - Cardiovascular insufficiency [Unknown]
  - Suicidal ideation [Unknown]
  - Depressed mood [Unknown]
  - Emotional disorder [Unknown]
  - Fatigue [Unknown]
  - Mental disorder [Unknown]
  - Somnolence [Unknown]
  - Drug ineffective [Unknown]
